FAERS Safety Report 22956118 (Version 10)
Quarter: 2024Q2

REPORT INFORMATION
  Report Type: Report from Study
  Country: CA (occurrence: CA)
  Receive Date: 20230919
  Receipt Date: 20240422
  Transmission Date: 20240716
  Serious: Yes (Hospitalization, Other)
  Sender: FDA-Public Use
  Company Number: CA-JNJFOC-20230928527

PATIENT
  Age: 16 Year
  Sex: Female

DRUGS (6)
  1. REMICADE [Suspect]
     Active Substance: INFLIXIMAB
     Indication: Crohn^s disease
     Route: 042
     Dates: start: 20230814
  2. REMICADE [Suspect]
     Active Substance: INFLIXIMAB
     Route: 042
     Dates: start: 2023
  3. REMICADE [Suspect]
     Active Substance: INFLIXIMAB
     Dosage: PHYSICIAN REQUESTED RE-INDUCTION AT 10MG/KG - WEEK 0,2,6 THEN Q4W
     Route: 042
     Dates: start: 2023
  4. REMICADE [Suspect]
     Active Substance: INFLIXIMAB
     Dosage: REINDUCTION DOSE?SLOW INFUSION ONLY, WEEK 0 GIVEN ON 25-OCT-2023.?EXPIRY DATE: MAR-2026
     Route: 042
     Dates: start: 20231025
  5. HYDROCORTISONE [Concomitant]
     Active Substance: HYDROCORTISONE
     Indication: Premedication
     Route: 042
     Dates: start: 20231025
  6. BENADRYL [Concomitant]
     Active Substance: DIPHENHYDRAMINE HYDROCHLORIDE
     Indication: Premedication
     Route: 042
     Dates: start: 20231025

REACTIONS (10)
  - Infusion related reaction [Recovered/Resolved]
  - Cough [Recovering/Resolving]
  - Crohn^s disease [Recovering/Resolving]
  - Throat irritation [Recovering/Resolving]
  - Drug specific antibody present [Unknown]
  - Drug level decreased [Unknown]
  - Oropharyngeal pain [Unknown]
  - Weight decreased [Unknown]
  - Off label use [Unknown]
  - Incorrect drug administration rate [Unknown]

NARRATIVE: CASE EVENT DATE: 20230101
